FAERS Safety Report 17598133 (Version 1)
Quarter: 2020Q1

REPORT INFORMATION
  Report Type: Spontaneous
  Country: US (occurrence: US)
  Receive Date: 20200328
  Receipt Date: 20200328
  Transmission Date: 20200409
  Serious: No
  Sender: FDA-Public Use
  Company Number: None

PATIENT
  Age: 37 Year
  Sex: Female
  Weight: 80.1 kg

DRUGS (12)
  1. OCELLA [Concomitant]
     Active Substance: DROSPIRENONE\ETHINYL ESTRADIOL
  2. TYLENOL [Concomitant]
     Active Substance: ACETAMINOPHEN
  3. ZINC. [Concomitant]
     Active Substance: ZINC
  4. OTEZLA [Suspect]
     Active Substance: APREMILAST
     Indication: PSORIATIC ARTHROPATHY
     Dosage: ?          QUANTITY:1 TABLET(S);?
     Route: 048
     Dates: start: 20200214, end: 20200323
  5. BACLOFEN. [Concomitant]
     Active Substance: BACLOFEN
  6. ADVIL [Concomitant]
     Active Substance: IBUPROFEN
  7. OTEZLA [Suspect]
     Active Substance: APREMILAST
     Indication: PSORIASIS
     Dosage: ?          QUANTITY:1 TABLET(S);?
     Route: 048
     Dates: start: 20200214, end: 20200323
  8. TRIAMCINOLONE [Concomitant]
     Active Substance: TRIAMCINOLONE
  9. ALEVE [Concomitant]
     Active Substance: NAPROXEN SODIUM
  10. VITAMIN D [Concomitant]
     Active Substance: VITAMIN D NOS
  11. CLOBESTOL CREAM [Concomitant]
  12. MAGNESIUM [Concomitant]
     Active Substance: MAGNESIUM

REACTIONS (4)
  - Helplessness [None]
  - Anhedonia [None]
  - Depressed mood [None]
  - Inappropriate affect [None]

NARRATIVE: CASE EVENT DATE: 20200318
